FAERS Safety Report 21096187 (Version 2)
Quarter: 2022Q3

REPORT INFORMATION
  Report Type: Spontaneous
  Country: US (occurrence: None)
  Receive Date: 20220718
  Receipt Date: 20220803
  Transmission Date: 20221027
  Serious: Yes (Hospitalization, Other)
  Sender: FDA-Public Use
  Company Number: US-ROCHE-3137523

PATIENT
  Sex: Male

DRUGS (15)
  1. RITUXAN [Suspect]
     Active Substance: RITUXIMAB
     Indication: Diffuse large B-cell lymphoma
     Dosage: DA R EPOCH ;ONGOING: NO
     Route: 065
     Dates: start: 20210426, end: 20210809
  2. RITUXAN [Suspect]
     Active Substance: RITUXIMAB
     Dosage: 2 CYCLES RICE BETWEEN FEBRUARY AND APRIL OF 2022 ;ONGOING: NO
     Route: 065
     Dates: start: 202202, end: 202204
  3. RITUXAN [Suspect]
     Active Substance: RITUXIMAB
     Dosage: RICE ;ONGOING: NO
     Route: 065
     Dates: start: 20220531, end: 20220629
  4. DEXAMETHASONE [Concomitant]
     Active Substance: DEXAMETHASONE
  5. ETOPOSIDE [Concomitant]
     Active Substance: ETOPOSIDE
     Indication: Diffuse large B-cell lymphoma
     Dosage: DA R EPOCH ;ONGOING: NO
     Dates: start: 20210426, end: 20210809
  6. ETOPOSIDE [Concomitant]
     Active Substance: ETOPOSIDE
     Dosage: 2 CYCLES RICE BETWEEN FEBRUARY AND APRIL OF 2022 ;ONGOING: NO
     Dates: start: 202202, end: 202204
  7. ETOPOSIDE [Concomitant]
     Active Substance: ETOPOSIDE
     Dosage: RICE ;ONGOING: NO
     Dates: start: 20220531, end: 20220629
  8. PREDNISONE [Concomitant]
     Active Substance: PREDNISONE
     Indication: Diffuse large B-cell lymphoma
     Dosage: DA R EPOCH ;ONGOING: NO
     Dates: start: 20210426, end: 20210809
  9. VINCRISTINE [Concomitant]
     Active Substance: VINCRISTINE
     Indication: Diffuse large B-cell lymphoma
     Dosage: DA R EPOCH ;ONGOING: NO
     Dates: start: 20210426, end: 20210809
  10. CYCLOPHOSPHAMIDE [Concomitant]
     Active Substance: CYCLOPHOSPHAMIDE
     Indication: Diffuse large B-cell lymphoma
     Dosage: DA R EPOCH ;ONGOING: NO
     Dates: start: 20210426, end: 20210809
  11. DOXORUBICIN [Concomitant]
     Active Substance: DOXORUBICIN
     Indication: Diffuse large B-cell lymphoma
     Dates: start: 20210426, end: 20210809
  12. IFOSFAMIDE [Concomitant]
     Active Substance: IFOSFAMIDE
     Indication: Diffuse large B-cell lymphoma
     Dosage: 2 CYCLES RICE BETWEEN FEBRUARY AND APRIL OF 2022 ;ONGOING: NO
     Dates: start: 202202, end: 202204
  13. IFOSFAMIDE [Concomitant]
     Active Substance: IFOSFAMIDE
     Dosage: RICE ;ONGOING: NO
     Dates: start: 20220531, end: 20220629
  14. CARBOPLATIN [Concomitant]
     Active Substance: CARBOPLATIN
     Indication: Diffuse large B-cell lymphoma
     Dosage: 2 CYCLES RICE BETWEEN FEBRUARY AND APRIL OF 2022 ;ONGOING: NO
     Dates: start: 202202, end: 202204
  15. CARBOPLATIN [Concomitant]
     Active Substance: CARBOPLATIN
     Dosage: RICE ;ONGOING: NO
     Dates: start: 20220531, end: 20220629

REACTIONS (5)
  - Pyrexia [Not Recovered/Not Resolved]
  - Neutropenia [Not Recovered/Not Resolved]
  - Cytopenia [Unknown]
  - Pleural mass [Not Recovered/Not Resolved]
  - Lymphoma [Not Recovered/Not Resolved]

NARRATIVE: CASE EVENT DATE: 20220224
